FAERS Safety Report 4808894-2 (Version None)
Quarter: 2005Q4

REPORT INFORMATION
  Report Type: 
  Country: None (occurrence: None)
  Receive Date: 20051021
  Receipt Date: 20030319
  Transmission Date: 20060501
  Serious: No
  Sender: FDA-Public Use
  Company Number: DE_030310940

PATIENT
  Age: 35 Year
  Sex: Female

DRUGS (1)
  1. ZYPREXA [Suspect]
     Indication: PSYCHOTIC DISORDER
     Dosage: 10 MG/DAY

REACTIONS (3)
  - ANAEMIA [None]
  - DRUG INEFFECTIVE [None]
  - FATIGUE [None]
